FAERS Safety Report 7568612-4 (Version None)
Quarter: 2011Q2

REPORT INFORMATION
  Report Type: 
  Country: None (occurrence: None)
  Receive Date: 20110623
  Receipt Date: 20110418
  Transmission Date: 20111010
  Serious: No
  Sender: FDA-Public Use
  Company Number: US-TYCO HEALTHCARE/MALLINCKRODT-T201100792

PATIENT
  Sex: Male

DRUGS (3)
  1. TECHNETIUM TC 99M SESTAMIBI [Suspect]
     Indication: SCAN MYOCARDIAL PERFUSION
     Dosage: UNK
     Route: 042
     Dates: start: 20110411, end: 20110411
  2. ULTRA-TECHNEKOW [Concomitant]
     Indication: CARDIAC STRESS TEST
     Dosage: 31.2 MCI, UNK
     Route: 042
     Dates: start: 20110411, end: 20110411
  3. ADENOSINE [Concomitant]
     Indication: CARDIAC STRESS TEST
     Dosage: 46.6 MG, UNK
     Dates: start: 20110411, end: 20110411

REACTIONS (1)
  - DRUG INEFFECTIVE [None]
